FAERS Safety Report 9720275 (Version 1)
Quarter: 2013Q4

REPORT INFORMATION
  Report Type: Report from Study
  Country: US (occurrence: US)
  Receive Date: 20131129
  Receipt Date: 20131129
  Transmission Date: 20140711
  Serious: Yes (Death, Other)
  Sender: FDA-Public Use
  Company Number: US-ROCHE-1306927

PATIENT
  Sex: 0

DRUGS (6)
  1. BEVACIZUMAB [Suspect]
     Indication: NON-SMALL CELL LUNG CANCER
     Route: 042
  2. BEVACIZUMAB [Suspect]
     Dosage: MAINTENANCE REGIMEN
     Route: 042
  3. CETUXIMAB [Suspect]
     Indication: NON-SMALL CELL LUNG CANCER
     Dosage: ON DAY 1, LOADING DOSE
     Route: 042
  4. CETUXIMAB [Suspect]
     Dosage: MAINTENANCE REGIMEN
     Route: 042
  5. CARBOPLATIN [Suspect]
     Indication: NON-SMALL CELL LUNG CANCER
     Dosage: DOSE: AREA UNDER CURVE 6
     Route: 042
  6. PACLITAXEL [Suspect]
     Indication: NON-SMALL CELL LUNG CANCER
     Route: 042

REACTIONS (23)
  - Death [Fatal]
  - Infection [Fatal]
  - Pulmonary haemorrhage [Fatal]
  - Febrile neutropenia [Unknown]
  - Neutropenia [Unknown]
  - Dehydration [Unknown]
  - Dyspnoea [Unknown]
  - Fatigue [Unknown]
  - Hypokalaemia [Unknown]
  - Hypomagnesaemia [Unknown]
  - Thrombosis [Unknown]
  - Embolism [Unknown]
  - Platelet count abnormal [Unknown]
  - Neuropathy peripheral [Unknown]
  - Proteinuria [Unknown]
  - Gastrointestinal perforation [Unknown]
  - Hypersensitivity [Unknown]
  - Dermatitis acneiform [Unknown]
  - Diarrhoea [Unknown]
  - Hypertension [Unknown]
  - Nausea [Unknown]
  - Vomiting [Unknown]
  - Haemoglobin abnormal [Unknown]
